FAERS Safety Report 13191584 (Version 1)
Quarter: 2017Q1

REPORT INFORMATION
  Report Type: Spontaneous
  Country: HR (occurrence: HR)
  Receive Date: 20170207
  Receipt Date: 20170207
  Transmission Date: 20170428
  Serious: Yes (Life-Threatening, Hospitalization)
  Sender: FDA-Public Use
  Company Number: HR-BAUSCH-BL-2017-002397

PATIENT
  Age: 81 Year
  Sex: Female
  Weight: 62 kg

DRUGS (3)
  1. DICLO DUO [Suspect]
     Active Substance: DICLOFENAC SODIUM
     Indication: BACK PAIN
     Route: 048
     Dates: start: 20161206, end: 20161226
  2. CONCOR [Concomitant]
     Active Substance: BISOPROLOL FUMARATE
     Indication: ESSENTIAL HYPERTENSION
     Dates: start: 2008
  3. DICLO DUO [Suspect]
     Active Substance: DICLOFENAC SODIUM
     Indication: SPINAL FRACTURE

REACTIONS (5)
  - Peritonitis [Unknown]
  - Pleural effusion [Unknown]
  - Asthenia [Unknown]
  - Fatigue [Unknown]
  - Gastric ulcer [Recovered/Resolved]

NARRATIVE: CASE EVENT DATE: 20161226
